FAERS Safety Report 17666968 (Version 1)
Quarter: 2020Q2

REPORT INFORMATION
  Report Type: Spontaneous
  Country: US (occurrence: US)
  Receive Date: 20200414
  Receipt Date: 20200414
  Transmission Date: 20200713
  Serious: No
  Sender: FDA-Public Use
  Company Number: US-ASTELLAS-2019US021957

PATIENT
  Age: 43 Year
  Sex: Male

DRUGS (1)
  1. PROGRAF [Suspect]
     Active Substance: TACROLIMUS
     Indication: PANCREAS TRANSPLANT
     Dosage: 0.5 MG, TWICE DAILY
     Route: 065
     Dates: start: 20080512

REACTIONS (1)
  - Immunosuppressant drug level increased [Unknown]
